FAERS Safety Report 12984206 (Version 2)
Quarter: 2019Q1

REPORT INFORMATION
  Report Type: Report from Study
  Country: AU (occurrence: AU)
  Receive Date: 20161129
  Receipt Date: 20190328
  Transmission Date: 20190417
  Serious: Yes (Hospitalization)
  Sender: FDA-Public Use
  Company Number: AU-ASTELLAS-2016US046495

PATIENT
  Age: 75 Year
  Sex: Male
  Weight: 104 kg

DRUGS (18)
  1. PANTOPRAZOLE SODIUM. [Concomitant]
     Active Substance: PANTOPRAZOLE SODIUM
     Indication: CHRONIC DISEASE
     Route: 048
     Dates: start: 20110101
  2. SPIRACTIN                          /00006201/ [Concomitant]
     Active Substance: SPIRONOLACTONE
     Indication: CHRONIC DISEASE
     Route: 048
     Dates: start: 20130101
  3. TARGIN [Concomitant]
     Active Substance: NALOXONE HYDROCHLORIDE\OXYCODONE HYDROCHLORIDE
     Indication: CHRONIC DISEASE
     Route: 048
     Dates: start: 20160601
  4. PANTOPRAZOLE SODIUM. [Concomitant]
     Active Substance: PANTOPRAZOLE SODIUM
     Route: 048
     Dates: start: 20170308
  5. PANADOL [Concomitant]
     Active Substance: ACETAMINOPHEN
     Indication: CHRONIC DISEASE
     Route: 048
     Dates: start: 20160601
  6. COVERSYL                           /00790702/ [Concomitant]
     Active Substance: PERINDOPRIL
     Indication: CHRONIC DISEASE
     Route: 048
     Dates: start: 20000101
  7. LASIX [Concomitant]
     Active Substance: FUROSEMIDE
     Indication: CHRONIC DISEASE
     Route: 048
     Dates: start: 20130101
  8. COLESE [Concomitant]
     Indication: CHRONIC DISEASE
     Route: 048
     Dates: start: 20160101
  9. GOSERELIN [Suspect]
     Active Substance: GOSERELIN
     Indication: PROSTATE CANCER METASTATIC
     Route: 058
     Dates: start: 20160817
  10. CEPHALEXIN                         /00145501/ [Concomitant]
     Active Substance: CEPHALEXIN
     Indication: CHRONIC DISEASE
     Route: 048
     Dates: start: 20160601
  11. PRAMIN                             /00041902/ [Concomitant]
     Indication: CHRONIC DISEASE
     Route: 048
     Dates: start: 20160601
  12. NORVASC [Concomitant]
     Active Substance: AMLODIPINE BESYLATE
     Indication: CHRONIC DISEASE
     Route: 048
     Dates: start: 20000101
  13. ASPIRIN. [Concomitant]
     Active Substance: ASPIRIN
     Indication: PROPHYLAXIS
     Route: 048
     Dates: start: 20060101
  14. ENZALUTAMIDE [Suspect]
     Active Substance: ENZALUTAMIDE
     Indication: PROSTATE CANCER METASTATIC
     Route: 048
     Dates: start: 20160831
  15. ASPIRIN. [Concomitant]
     Active Substance: ASPIRIN
     Indication: CHRONIC DISEASE
     Route: 048
     Dates: start: 20170308
  16. CELEBREX [Concomitant]
     Active Substance: CELECOXIB
     Indication: CHRONIC DISEASE
     Route: 048
     Dates: start: 20140101
  17. NORFLOXACIN [Concomitant]
     Active Substance: NORFLOXACIN
     Indication: CHRONIC DISEASE
     Route: 048
     Dates: start: 20160601
  18. DIAZEPAM. [Concomitant]
     Active Substance: DIAZEPAM
     Indication: PROPHYLAXIS
     Route: 048
     Dates: start: 20160601

REACTIONS (2)
  - Dyspnoea [Recovered/Resolved with Sequelae]
  - Embolism [Not Recovered/Not Resolved]

NARRATIVE: CASE EVENT DATE: 20161115
